APPROVED DRUG PRODUCT: VANCOMYCIN HYDROCHLORIDE
Active Ingredient: VANCOMYCIN HYDROCHLORIDE
Strength: EQ 5GM BASE/VIAL
Dosage Form/Route: INJECTABLE;INJECTION
Application: A062663 | Product #003 | TE Code: AP
Applicant: FRESENIUS KABI USA LLC
Approved: Jun 3, 1988 | RLD: No | RS: Yes | Type: RX